FAERS Safety Report 23521696 (Version 1)
Quarter: 2024Q1

REPORT INFORMATION
  Report Type: 
  Country: None (occurrence: None)
  Receive Date: 20240214
  Receipt Date: 20240214
  Transmission Date: 20240410
  Serious: No
  Sender: FDA-Public Use
  Company Number: IE-ROCHE-3399274

PATIENT

DRUGS (1)
  1. OCREVUS [Suspect]
     Active Substance: OCRELIZUMAB
     Dosage: 2 VIALS 300MGS

REACTIONS (4)
  - Gait disturbance [None]
  - Fatigue [None]
  - COVID-19 [None]
  - Urinary tract infection [None]
